FAERS Safety Report 22190930 (Version 1)
Quarter: 2023Q2

REPORT INFORMATION
  Report Type: Spontaneous
  Country: US (occurrence: None)
  Receive Date: 20230407
  Receipt Date: 20230407
  Transmission Date: 20230722
  Serious: Yes (Hospitalization)
  Sender: FDA-Public Use
  Company Number: None

PATIENT
  Sex: Female

DRUGS (13)
  1. DALFAMPRIDINE [Suspect]
     Active Substance: DALFAMPRIDINE
     Indication: Multiple sclerosis
     Dosage: FREQUENCY : TWICE A DAY;?
     Route: 048
     Dates: start: 20181211
  2. DALFAMPRIDINE [Suspect]
     Active Substance: DALFAMPRIDINE
     Dosage: FREQUENCY : TWICE A DAY;?
     Route: 048
  3. AMLOD/VALSAR TAB/HCTZ [Concomitant]
  4. BACLOFEN [Concomitant]
  5. BENADRYL [Concomitant]
  6. CLONAZEPAM [Concomitant]
     Active Substance: CLONAZEPAM
  7. EXFFEXOR XR [Concomitant]
  8. GABAPENTIN [Concomitant]
  9. METHYLPR ACE INJ [Concomitant]
  10. MODAFINIL [Concomitant]
  11. MOTRIN [Concomitant]
  12. NITROFURANTOIN [Concomitant]
     Active Substance: NITROFURANTOIN
  13. PROVIGIL [Concomitant]
     Active Substance: MODAFINIL

REACTIONS (3)
  - Pneumonia [None]
  - Sepsis [None]
  - Therapy interrupted [None]
